FAERS Safety Report 7714992-6 (Version None)
Quarter: 2011Q3

REPORT INFORMATION
  Report Type: 
  Country: None (occurrence: None)
  Receive Date: 20110829
  Receipt Date: 20110628
  Transmission Date: 20111222
  Serious: No
  Sender: FDA-Public Use
  Company Number: US-ASTRAZENECA-2011SE38850

PATIENT
  Age: 49 Year
  Sex: Female

DRUGS (5)
  1. CLARINEX [Concomitant]
  2. SINGULAIR [Concomitant]
  3. VIMOVO [Suspect]
     Route: 048
  4. SERTRALINE HYDROCHLORIDE [Concomitant]
  5. NASONEX [Concomitant]

REACTIONS (1)
  - PHARYNGITIS STREPTOCOCCAL [None]
